FAERS Safety Report 15412664 (Version 31)
Quarter: 2021Q4

REPORT INFORMATION
  Report Type: Report from Study
  Country: DE (occurrence: DE)
  Receive Date: 20180921
  Receipt Date: 20211202
  Transmission Date: 20220303
  Serious: Yes (Hospitalization, Other)
  Sender: FDA-Public Use
  Company Number: PHHY2018DE024042

PATIENT
  Age: 9 Year
  Sex: Female
  Weight: 50 kg

DRUGS (15)
  1. ILARIS [Suspect]
     Active Substance: CANAKINUMAB
     Indication: Cryopyrin associated periodic syndrome
     Dosage: 150 MG
     Route: 058
     Dates: start: 20171211, end: 20180915
  2. ILARIS [Suspect]
     Active Substance: CANAKINUMAB
     Indication: Muckle-Wells syndrome
     Dosage: 150 MG, UNK
     Route: 058
     Dates: start: 20180108
  3. ILARIS [Suspect]
     Active Substance: CANAKINUMAB
     Dosage: 150 MG, UNK
     Route: 065
     Dates: start: 20180227
  4. ILARIS [Suspect]
     Active Substance: CANAKINUMAB
     Dosage: 150 MG, UNK
     Route: 058
     Dates: start: 20180324
  5. ILARIS [Suspect]
     Active Substance: CANAKINUMAB
     Dosage: 225 MG, UNK
     Route: 065
     Dates: start: 20180503
  6. ILARIS [Suspect]
     Active Substance: CANAKINUMAB
     Dosage: 250 MG, UNK
     Route: 058
     Dates: start: 20180531
  7. ILARIS [Suspect]
     Active Substance: CANAKINUMAB
     Dosage: 300 MG, UNK
     Route: 058
     Dates: start: 20180915
  8. ILARIS [Suspect]
     Active Substance: CANAKINUMAB
     Dosage: 300 MG, UNK
     Route: 058
     Dates: start: 20181106
  9. ILARIS [Suspect]
     Active Substance: CANAKINUMAB
     Dosage: UNK
     Route: 065
  10. ILARIS [Suspect]
     Active Substance: CANAKINUMAB
     Dosage: 300 MG, UNK
     Route: 058
     Dates: start: 20190310
  11. ILARIS [Suspect]
     Active Substance: CANAKINUMAB
     Dosage: 300 MG, UNK
     Route: 058
     Dates: start: 20190507
  12. ILARIS [Suspect]
     Active Substance: CANAKINUMAB
     Dosage: 150 UNK
     Route: 058
     Dates: start: 20171211
  13. ILARIS [Suspect]
     Active Substance: CANAKINUMAB
     Dosage: 300 MG, UNK
     Route: 058
     Dates: start: 20181106
  14. ILARIS [Suspect]
     Active Substance: CANAKINUMAB
     Dosage: UNK
     Route: 065
  15. VAXIGRIP [Suspect]
     Active Substance: INFLUENZA VIRUS VACCINE
     Indication: Product used for unknown indication
     Dosage: UNK
     Route: 065
     Dates: start: 20180928

REACTIONS (31)
  - Blister [Recovered/Resolved]
  - Skin discolouration [Recovered/Resolved]
  - Erythema [Recovered/Resolved]
  - Cardiovascular disorder [Recovered/Resolved]
  - Haemophilus test positive [Recovered/Resolved]
  - Febrile convulsion [Recovered/Resolved]
  - Tonsillitis [Recovered/Resolved]
  - Oropharyngeal discomfort [Recovered/Resolved]
  - Pyrexia [Recovered/Resolved]
  - Pyrexia [Recovered/Resolved]
  - Skin exfoliation [Not Recovered/Not Resolved]
  - Tonsillar hypertrophy [Recovered/Resolved]
  - Pyrexia [Recovered/Resolved]
  - Upper respiratory tract infection bacterial [Recovered/Resolved]
  - Autism spectrum disorder [Not Recovered/Not Resolved]
  - Neutrophil count decreased [Unknown]
  - Peripheral swelling [Recovered/Resolved]
  - Weight increased [Not Recovered/Not Resolved]
  - Impaired healing [Recovered/Resolved]
  - Skin lesion [Not Recovered/Not Resolved]
  - Tonsillitis [Recovered/Resolved]
  - Urinary tract infection [Recovered/Resolved]
  - Influenza [Recovered/Resolved]
  - Bronchitis [Recovered/Resolved]
  - Rotavirus infection [Recovered/Resolved]
  - Otitis media staphylococcal [Recovered/Resolved]
  - Infection [Unknown]
  - Hyperhidrosis [Recovered/Resolved]
  - Skin reaction [Recovered/Resolved]
  - Rash [Unknown]
  - Drug ineffective [Recovered/Resolved]

NARRATIVE: CASE EVENT DATE: 20180204
